FAERS Safety Report 13668452 (Version 1)
Quarter: 2017Q2

REPORT INFORMATION
  Report Type: Spontaneous
  Country: US (occurrence: US)
  Receive Date: 20170619
  Receipt Date: 20170619
  Transmission Date: 20170830
  Serious: No
  Sender: FDA-Public Use
  Company Number: None

PATIENT
  Age: 44 Year
  Sex: Male

DRUGS (1)
  1. STELARA [Suspect]
     Active Substance: USTEKINUMAB
     Indication: CROHN^S DISEASE
     Dosage: 90MG Q8W SQ
     Route: 058
     Dates: start: 20161220

REACTIONS (4)
  - Mood swings [None]
  - Nausea [None]
  - Vomiting [None]
  - Diarrhoea [None]

NARRATIVE: CASE EVENT DATE: 20170425
